FAERS Safety Report 9505453 (Version 1)
Quarter: 2013Q1

REPORT INFORMATION
  Report Type: Spontaneous
  Country: US (occurrence: None)
  Receive Date: 20130220
  Receipt Date: 20130220
  Transmission Date: 20140127
  Serious: No
  Sender: FDA-Public Use
  Company Number: 1000041778

PATIENT
  Age: 40 Year
  Sex: Male

DRUGS (3)
  1. VIIBRYD (VILAZODONE HYDROCHLORIDE) [Suspect]
     Indication: DEPRESSION
     Route: 048
  2. MARIJUANA (CANNABIS SATIVA ) [Concomitant]
  3. BENZODIAZEPINES NOS [Concomitant]

REACTIONS (1)
  - Priapism [None]
